FAERS Safety Report 18310460 (Version 1)
Quarter: 2020Q3

REPORT INFORMATION
  Report Type: Spontaneous
  Country: US (occurrence: US)
  Receive Date: 20200924
  Receipt Date: 20200924
  Transmission Date: 20201103
  Serious: No
  Sender: FDA-Public Use
  Company Number: US-ENDO PHARMACEUTICALS INC-2020-003174

PATIENT
  Age: 59 Year
  Sex: Female

DRUGS (8)
  1. CLONAZEPAM. [Suspect]
     Active Substance: CLONAZEPAM
     Indication: DRUG WITHDRAWAL SYNDROME
     Dosage: 2 DF, DAILY
     Route: 065
     Dates: start: 202001
  2. METFORMIN [Concomitant]
     Active Substance: METFORMIN HYDROCHLORIDE
     Indication: PRODUCT USED FOR UNKNOWN INDICATION
  3. PROZAC [Concomitant]
     Active Substance: FLUOXETINE HYDROCHLORIDE
     Indication: PRODUCT USED FOR UNKNOWN INDICATION
  4. ALLEGRA [Concomitant]
     Active Substance: FEXOFENADINE HYDROCHLORIDE
     Indication: PRODUCT USED FOR UNKNOWN INDICATION
  5. BIJUVA [Concomitant]
     Active Substance: ESTRADIOL\PROGESTERONE
     Indication: PRODUCT USED FOR UNKNOWN INDICATION
  6. OBETICHOL ACID [Concomitant]
     Indication: PRODUCT USED FOR UNKNOWN INDICATION
  7. ADDERALL [Concomitant]
     Active Substance: AMPHETAMINE ASPARTATE\AMPHETAMINE SULFATE\DEXTROAMPHETAMINE SACCHARATE\DEXTROAMPHETAMINE SULFATE
     Indication: PRODUCT USED FOR UNKNOWN INDICATION
  8. ROSUVASTATIN. [Concomitant]
     Active Substance: ROSUVASTATIN
     Indication: PRODUCT USED FOR UNKNOWN INDICATION

REACTIONS (4)
  - Product packaging difficult to open [Unknown]
  - Off label use [Not Recovered/Not Resolved]
  - Product storage error [Not Recovered/Not Resolved]
  - Fatigue [Unknown]
